FAERS Safety Report 14845788 (Version 1)
Quarter: 2018Q2

REPORT INFORMATION
  Report Type: Spontaneous
  Country: FR (occurrence: FR)
  Receive Date: 20180504
  Receipt Date: 20180504
  Transmission Date: 20180711
  Serious: Yes (Other)
  Sender: FDA-Public Use
  Company Number: FR-MERCK KGAA-2047156

PATIENT
  Age: 61 Year
  Sex: Female

DRUGS (1)
  1. NOVOTHYROX [Suspect]
     Active Substance: LEVOTHYROXINE SODIUM
     Indication: PRODUCT USED FOR UNKNOWN INDICATION

REACTIONS (22)
  - Anxiety [None]
  - Middle insomnia [None]
  - Migraine [None]
  - Nasopharyngitis [None]
  - Blood thyroid stimulating hormone abnormal [None]
  - Decreased interest [None]
  - Asthenia [None]
  - Disturbance in attention [None]
  - Mean cell haemoglobin concentration decreased [None]
  - Derealisation [None]
  - Alopecia [None]
  - General physical health deterioration [None]
  - Irritability [None]
  - Fatigue [None]
  - Hypothermia [None]
  - Loss of personal independence in daily activities [None]
  - Blood thyroid stimulating hormone decreased [None]
  - Eosinophil count decreased [None]
  - Sleep disorder [None]
  - Dizziness [None]
  - Insomnia [None]
  - Headache [None]

NARRATIVE: CASE EVENT DATE: 2017
